FAERS Safety Report 24686117 (Version 1)
Quarter: 2024Q4

REPORT INFORMATION
  Report Type: Spontaneous
  Country: US (occurrence: None)
  Receive Date: 20241127
  Receipt Date: 20241127
  Transmission Date: 20250115
  Serious: Yes (Death, Hospitalization)
  Sender: Public
  Company Number: None

PATIENT
  Age: 92 Year
  Sex: Female
  Weight: 48.6 kg

DRUGS (19)
  1. CLONAZEPAM [Suspect]
     Active Substance: CLONAZEPAM
     Dates: start: 20241115, end: 20241116
  2. ELIQUIS [Concomitant]
     Active Substance: APIXABAN
  3. HYDROCORTISONE [Concomitant]
     Active Substance: HYDROCORTISONE
  4. Flurosimide [Concomitant]
  5. PREDNISONE [Concomitant]
     Active Substance: PREDNISONE
  6. SINGULAIR [Concomitant]
     Active Substance: MONTELUKAST SODIUM
  7. SPIRIVA [Concomitant]
     Active Substance: TIOTROPIUM BROMIDE MONOHYDRATE
  8. WIXELA INHUB [Concomitant]
     Active Substance: FLUTICASONE PROPIONATE\SALMETEROL XINAFOATE
  9. ALBUTEROL [Concomitant]
     Active Substance: ALBUTEROL
  10. LOVASTATIN [Concomitant]
     Active Substance: LOVASTATIN
  11. FAMOTIDINE [Concomitant]
     Active Substance: FAMOTIDINE
  12. Ameoderone [Concomitant]
  13. CALCIUM [Concomitant]
     Active Substance: CALCIUM
  14. VITAMINS [Concomitant]
     Active Substance: VITAMINS
  15. VITAMIN D3 [Concomitant]
     Active Substance: CHOLECALCIFEROL
  16. BIOTIN [Concomitant]
     Active Substance: BIOTIN
  17. COENZYME Q10 [Concomitant]
     Active Substance: DIETARY SUPPLEMENT\UBIDECARENONE
  18. LORATADINE [Concomitant]
     Active Substance: LORATADINE
  19. FLONASE [Concomitant]
     Active Substance: FLUTICASONE PROPIONATE

REACTIONS (4)
  - Unresponsive to stimuli [None]
  - Loss of consciousness [None]
  - Product dispensing error [None]
  - Wrong product administered [None]

NARRATIVE: CASE EVENT DATE: 20241115
